FAERS Safety Report 17690156 (Version 1)
Quarter: 2020Q2

REPORT INFORMATION
  Report Type: Spontaneous
  Country: US (occurrence: US)
  Receive Date: 20200417
  Receipt Date: 20200417
  Transmission Date: 20200714
  Serious: Yes (Life-Threatening, Hospitalization, Disabling, Other)
  Sender: FDA-Public Use
  Company Number: None

PATIENT
  Age: 69 Year
  Sex: Female
  Weight: 63.5 kg

DRUGS (26)
  1. WHEEL CHAIR [Concomitant]
  2. ZINC/MAGNESIUM [Concomitant]
  3. LASIX [Concomitant]
     Active Substance: FUROSEMIDE
  4. HYDR-ALAZINE [Concomitant]
  5. GLIPIZIDE. [Concomitant]
     Active Substance: GLIPIZIDE
  6. MECLIZINE [Concomitant]
     Active Substance: MECLIZINE HYDROCHLORIDE
  7. CARVEDILOL. [Concomitant]
     Active Substance: CARVEDILOL
  8. P.T. BANDS [Concomitant]
  9. VITAMIN B12 [Concomitant]
     Active Substance: CYANOCOBALAMIN
  10. PROMETHAZINE [Concomitant]
     Active Substance: PROMETHAZINE HYDROCHLORIDE
  11. TYLENOL [Concomitant]
     Active Substance: ACETAMINOPHEN
  12. CANE [Concomitant]
  13. OXYCODONE [Concomitant]
     Active Substance: OXYCODONE
  14. BIOTIN [Concomitant]
     Active Substance: BIOTIN
  15. GENERIC WELLBUTIN XL [Concomitant]
  16. TYLENOL PM [Concomitant]
     Active Substance: ACETAMINOPHEN\DIPHENHYDRAMINE
  17. BABY ASPIRIN [Concomitant]
     Active Substance: ASPIRIN
  18. CALCIUM [Concomitant]
     Active Substance: CALCIUM
  19. MAGNESIUM [Concomitant]
     Active Substance: MAGNESIUM
  20. LOSARTAN POTASSIUM 25MG [Suspect]
     Active Substance: LOSARTAN POTASSIUM
     Indication: CARDIAC FAILURE CONGESTIVE
     Dosage: ?          QUANTITY:1 DAY;?
     Dates: end: 201901
  21. HYDROXYZIINE HCL [Concomitant]
  22. POTASSIUM CHLROIDE [Concomitant]
  23. MONOXIDE [Concomitant]
  24. WALKER [Concomitant]
  25. HAIR, SKIN + NAILS [Concomitant]
     Active Substance: MINERALS\VITAMINS
  26. PROZAC GENERIC HCL [Concomitant]

REACTIONS (46)
  - Blood cholesterol increased [None]
  - Blepharospasm [None]
  - Intervertebral disc degeneration [None]
  - Hyperhidrosis [None]
  - Fibromyalgia [None]
  - Insomnia [None]
  - Depression [None]
  - Amnesia [None]
  - Head injury [None]
  - Migraine [None]
  - Limb fracture [None]
  - Feeling hot [None]
  - Tooth loss [None]
  - Dysphagia [None]
  - Recalled product administered [None]
  - Anxiety [None]
  - Chest pain [None]
  - Paraesthesia [None]
  - Product formulation issue [None]
  - Diabetes mellitus [None]
  - Alopecia [None]
  - Joint range of motion decreased [None]
  - Concussion [None]
  - Night sweats [None]
  - Contusion [None]
  - Skin laceration [None]
  - Hypoaesthesia [None]
  - Loss of personal independence in daily activities [None]
  - Seizure [None]
  - Dyskinesia [None]
  - Muscle twitching [None]
  - Gait inability [None]
  - Nausea [None]
  - Suicidal ideation [None]
  - Carcinogenicity [None]
  - Vertigo [None]
  - Communication disorder [None]
  - Vomiting [None]
  - Hypertension [None]
  - Condition aggravated [None]
  - Dysphemia [None]
  - Aphasia [None]
  - Fall [None]
  - Multiple fractures [None]
  - Dizziness [None]
  - Muscle atrophy [None]
